FAERS Safety Report 21590972 (Version 1)
Quarter: 2022Q4

REPORT INFORMATION
  Report Type: Spontaneous
  Country: US (occurrence: None)
  Receive Date: 20221111
  Receipt Date: 20221111
  Transmission Date: 20230112
  Serious: Yes (Disabling, Other)
  Sender: FDA-Public Use
  Company Number: None

PATIENT
  Age: 69 Year
  Sex: Male
  Weight: 85.05 kg

DRUGS (1)
  1. SENNA AND DOCUSATE SODIUM [Suspect]
     Active Substance: DOCUSATE SODIUM\SENNOSIDES
     Indication: Constipation
     Dates: start: 20210511, end: 20221006

REACTIONS (9)
  - Inappropriate schedule of product administration [None]
  - Weight decreased [None]
  - Dizziness [None]
  - Fall [None]
  - Injury [None]
  - Electrolyte imbalance [None]
  - Dehydration [None]
  - Hunger [None]
  - Diarrhoea [None]

NARRATIVE: CASE EVENT DATE: 20210511
